FAERS Safety Report 13882614 (Version 5)
Quarter: 2019Q2

REPORT INFORMATION
  Report Type: Spontaneous
  Country: GI (occurrence: GI)
  Receive Date: 20170818
  Receipt Date: 20190415
  Transmission Date: 20190711
  Serious: Yes (Hospitalization)
  Sender: FDA-Public Use
  Company Number: GI-NOVOPROD-558656

PATIENT
  Age: 40 Year
  Sex: Male

DRUGS (2)
  1. NOVORAPID [Suspect]
     Active Substance: INSULIN ASPART
     Dosage: 60 - 80 UNITS
     Route: 058
     Dates: start: 20170804
  2. NOVORAPID [Suspect]
     Active Substance: INSULIN ASPART
     Indication: TYPE 1 DIABETES MELLITUS
     Dosage: 60 - 80 UNITS
     Route: 058

REACTIONS (4)
  - Product leakage [Unknown]
  - Tonsillitis [Unknown]
  - Diabetic ketoacidosis [Unknown]
  - Coma [Recovered/Resolved]

NARRATIVE: CASE EVENT DATE: 20170804
